FAERS Safety Report 11076461 (Version 3)
Quarter: 2015Q2

REPORT INFORMATION
  Report Type: Spontaneous
  Country: US (occurrence: US)
  Receive Date: 20150429
  Receipt Date: 20150609
  Transmission Date: 20150821
  Serious: Yes (Hospitalization, Other)
  Sender: FDA-Public Use
  Company Number: US-GLAXOSMITHKLINE-US2015GSK056888

PATIENT
  Age: 69 Year
  Sex: Female

DRUGS (1)
  1. ADVAIR DISKUS [Suspect]
     Active Substance: FLUTICASONE PROPIONATE\SALMETEROL XINAFOATE
     Indication: CHRONIC OBSTRUCTIVE PULMONARY DISEASE
     Dosage: UNK, U

REACTIONS (7)
  - Surgery [Unknown]
  - Spinal column stenosis [Unknown]
  - Neck surgery [Unknown]
  - Fall [Unknown]
  - Hospitalisation [Unknown]
  - Expired product administered [Unknown]
  - Shoulder operation [Unknown]

NARRATIVE: CASE EVENT DATE: 2012
